FAERS Safety Report 10450766 (Version 1)
Quarter: 2014Q3

REPORT INFORMATION
  Report Type: Spontaneous
  Country: US (occurrence: None)
  Receive Date: 20140910
  Receipt Date: 20140910
  Transmission Date: 20150326
  Serious: Yes (Other)
  Sender: FDA-Public Use
  Company Number: 00179645A

PATIENT
  Sex: Female

DRUGS (6)
  1. PROACTIV PLUS PORE TARGETING TREATMENT [Suspect]
     Active Substance: BENZOYL PEROXIDE
     Indication: ACNE
     Dosage: ONCE DAILY DERMAL
     Dates: start: 20140810, end: 20140812
  2. PROACTIV PLUS COMPLEXION PERFECTING HYDRATOR [Suspect]
     Active Substance: SALICYLIC ACID
     Indication: ACNE
     Dosage: ONCE DAILY DERMAL
     Dates: start: 20140810, end: 20140812
  3. PROACTIV PLUS SKIN PURIFYING MASK [Suspect]
     Active Substance: SULFUR
     Indication: ACNE
     Dosage: ONCE DAILY DERMAL
     Dates: start: 20140810, end: 20140812
  4. PROACTIV PLUS MARK FADING [Suspect]
     Active Substance: GLYCOLIC ACID\SALICYLIC ACID
     Indication: ACNE
  5. PROACTIVPLUS SKIN SMOOTHING EXFOLIATOR [Suspect]
     Active Substance: BENZOYL PEROXIDE
     Indication: ACNE
     Dosage: ONCE DAILY DERMAL
     Dates: start: 20140810, end: 20140812
  6. PROACTIV PLUS SKIN PURIFYING MASK [Suspect]
     Active Substance: SULFUR
     Indication: ACNE
     Dosage: ONCE DAILY DERMAL
     Dates: start: 20140810, end: 20140812

REACTIONS (3)
  - Swelling face [None]
  - Eye swelling [None]
  - Erythema [None]

NARRATIVE: CASE EVENT DATE: 20140812
